FAERS Safety Report 5267752-2 (Version None)
Quarter: 2007Q1

REPORT INFORMATION
  Report Type: 
  Country: None (occurrence: None)
  Receive Date: 20070316
  Receipt Date: 20070305
  Transmission Date: 20070707
  Serious: Yes (Other)
  Sender: FDA-Public Use
  Company Number: US-PFIZER INC-2007014395

PATIENT
  Sex: Female
  Weight: 50.8 kg

DRUGS (7)
  1. CHANTIX [Suspect]
     Indication: SMOKING CESSATION THERAPY
     Dates: start: 20070208, end: 20070305
  2. EVISTA [Concomitant]
  3. ALPRAZOLAM [Concomitant]
  4. PAROXETINE HCL [Concomitant]
     Indication: BIPOLAR DISORDER
  5. SKELAXIN [Concomitant]
  6. DEPAKOTE [Concomitant]
     Indication: BIPOLAR DISORDER
  7. VALIUM [Concomitant]

REACTIONS (5)
  - DYSGEUSIA [None]
  - DYSPHAGIA [None]
  - INSOMNIA [None]
  - OEDEMA MOUTH [None]
  - ORAL PAIN [None]
